FAERS Safety Report 7042755-6 (Version None)
Quarter: 2010Q4

REPORT INFORMATION
  Report Type: 
  Country: None (occurrence: None)
  Receive Date: 20101013
  Receipt Date: 20100525
  Transmission Date: 20110411
  Serious: No
  Sender: FDA-Public Use
  Company Number: US-ASTRAZENECA-2010SE23987

PATIENT
  Age: 42 Year
  Sex: Female
  Weight: 53.5 kg

DRUGS (6)
  1. SYMBICORT [Suspect]
     Indication: ASTHMA
     Dosage: 160/4.5 MCG TWO PUFFS
     Route: 055
     Dates: start: 20100201
  2. SYMBICORT [Suspect]
     Dosage: PMDI 80/4.5 MCG FOUR PUFFS
     Route: 055
     Dates: start: 20100101
  3. SYMBICORT [Suspect]
     Dosage: PMDI 80/4.5 MCG TWO PUFFS
     Route: 055
     Dates: start: 20100101
  4. XANAX [Concomitant]
  5. VICODIN [Concomitant]
     Dosage: PRN
  6. ALBUTEROL NEBULISATION [Concomitant]
     Dosage: PRN

REACTIONS (2)
  - HYPOVENTILATION [None]
  - INCORRECT DOSE ADMINISTERED [None]
